FAERS Safety Report 26129003 (Version 2)
Quarter: 2025Q4

REPORT INFORMATION
  Report Type: Spontaneous
  Country: US (occurrence: US)
  Receive Date: 20251208
  Receipt Date: 20251209
  Transmission Date: 20260117
  Serious: Yes (Hospitalization, Other)
  Sender: BRISTOL-MYERS SQUIBB COMPANY
  Company Number: US-BRISTOL-MYERS SQUIBB COMPANY-2025-164171

PATIENT
  Age: 52 Year
  Sex: Female
  Weight: 57.61 kg

DRUGS (2)
  1. REVLIMID [Suspect]
     Active Substance: LENALIDOMIDE
     Indication: Plasma cell myeloma
     Dosage: FREQ : DAILY FOR 21 DAYS AND 7 DAYS OFF OF A 28-DAY CYCLE.
     Route: 048
     Dates: start: 20250605
  2. REVLIMID [Suspect]
     Active Substance: LENALIDOMIDE
     Dosage: DRUG SEPARATE DOSAGE NUMBER: 21
     Route: 048

REACTIONS (2)
  - Pneumothorax [Unknown]
  - Renal disorder [Unknown]

NARRATIVE: CASE EVENT DATE: 20251104
